FAERS Safety Report 4336996-6 (Version None)
Quarter: 2004Q1

REPORT INFORMATION
  Report Type: 
  Country: None (occurrence: None)
  Receive Date: 20040329
  Receipt Date: 20040120
  Transmission Date: 20041129
  Serious: No
  Sender: FDA-Public Use
  Company Number: USA040157021

PATIENT
  Age: 7 Year
  Sex: Male

DRUGS (2)
  1. STRATTERA [Suspect]
     Indication: AUTISM
     Dosage: 20 MG/DAY
     Dates: start: 20031124
  2. STRATTERA [Suspect]
     Indication: DISTURBANCE IN ATTENTION
     Dosage: 20 MG/DAY
     Dates: start: 20031124

REACTIONS (2)
  - COUGH [None]
  - TIC [None]
